FAERS Safety Report 9399246 (Version 1)
Quarter: 2013Q3

REPORT INFORMATION
  Report Type: Spontaneous
  Country: FR (occurrence: FR)
  Receive Date: 20130710
  Receipt Date: 20130710
  Transmission Date: 20140515
  Serious: Yes (Other)
  Sender: FDA-Public Use
  Company Number: 2013000152

PATIENT
  Age: 20 Year
  Sex: Male
  Weight: 70 kg

DRUGS (2)
  1. ACEON [Suspect]
     Indication: CARDIAC DISORDER
     Route: 048
     Dates: start: 2002, end: 201301
  2. KARDEGIC (ACETYLSALICYLATE LYSINE) [Concomitant]

REACTIONS (8)
  - Dyspnoea [None]
  - Tremor [None]
  - Anxiety [None]
  - Gastroenteritis [None]
  - Pyrexia [None]
  - Diarrhoea [None]
  - Nausea [None]
  - Throat irritation [None]
